FAERS Safety Report 17510270 (Version 1)
Quarter: 2020Q1

REPORT INFORMATION
  Report Type: Spontaneous
  Country: US (occurrence: US)
  Receive Date: 20200306
  Receipt Date: 20200306
  Transmission Date: 20200409
  Serious: No
  Sender: FDA-Public Use
  Company Number: None

PATIENT
  Age: 40 Year
  Sex: Male
  Weight: 88.2 kg

DRUGS (3)
  1. GRANISETRON 1MG [Concomitant]
     Dates: start: 20200304, end: 20200304
  2. DEXAMETHASONE 4MG [Concomitant]
     Active Substance: DEXAMETHASONE
     Dates: start: 20200304, end: 20200304
  3. OXALIPLATIN. [Suspect]
     Active Substance: OXALIPLATIN
     Indication: COLORECTAL CANCER
     Dosage: ?          OTHER FREQUENCY:ONCE;?
     Route: 042
     Dates: start: 20200304, end: 20200304

REACTIONS (2)
  - Pruritus [None]
  - Flushing [None]

NARRATIVE: CASE EVENT DATE: 20200304
